FAERS Safety Report 25128434 (Version 2)
Quarter: 2025Q2

REPORT INFORMATION
  Report Type: Spontaneous
  Country: US (occurrence: US)
  Receive Date: 20250327
  Receipt Date: 20250404
  Transmission Date: 20250717
  Serious: Yes (Other)
  Sender: RANBAXY
  Company Number: US-SUN PHARMACEUTICAL INDUSTRIES LTD-2025R1-500676

PATIENT
  Age: 54 Year
  Sex: Female

DRUGS (11)
  1. ATROPINE\DIPHENOXYLATE [Suspect]
     Active Substance: ATROPINE\DIPHENOXYLATE
     Indication: Colitis microscopic
     Route: 065
  2. BUDESONIDE [Suspect]
     Active Substance: BUDESONIDE
     Indication: Colitis microscopic
     Dosage: 6 MILLIGRAM, DAILY
     Route: 065
  3. LOPERAMIDE [Suspect]
     Active Substance: LOPERAMIDE
     Indication: Colitis microscopic
     Route: 065
  4. NALTREXONE [Suspect]
     Active Substance: NALTREXONE
     Indication: Colitis microscopic
     Route: 065
  5. RIFAXIMIN [Suspect]
     Active Substance: RIFAXIMIN
     Indication: Colitis microscopic
     Route: 065
  6. AZATHIOPRINE [Suspect]
     Active Substance: AZATHIOPRINE
     Indication: Colitis microscopic
     Route: 065
  7. BISMUTH [Suspect]
     Active Substance: BISMUTH SUBSALICYLATE
     Indication: Colitis microscopic
     Route: 065
  8. CHOLESTYRAMINE [Suspect]
     Active Substance: CHOLESTYRAMINE
     Indication: Colitis microscopic
     Route: 065
  9. COLESTIPOL [Suspect]
     Active Substance: COLESTIPOL
     Indication: Colitis microscopic
     Route: 065
  10. ELUXADOLINE [Suspect]
     Active Substance: ELUXADOLINE
     Indication: Colitis microscopic
     Route: 065
  11. PSYLLIUM [Suspect]
     Active Substance: PLANTAGO SEED
     Indication: Colitis microscopic
     Route: 065

REACTIONS (1)
  - Treatment failure [Unknown]
